FAERS Safety Report 7338155-1 (Version None)
Quarter: 2011Q1

REPORT INFORMATION
  Report Type: 
  Country: None (occurrence: None)
  Receive Date: 20110308
  Receipt Date: 20110223
  Transmission Date: 20110831
  Serious: Yes (Other)
  Sender: FDA-Public Use
  Company Number: FR-ELI_LILLY_AND_COMPANY-FR201103000948

PATIENT
  Sex: Female

DRUGS (9)
  1. NEXIUM [Concomitant]
  2. PLAVIX [Concomitant]
  3. LEXOMIL [Concomitant]
  4. TAHOR [Concomitant]
  5. CYMBALTA [Suspect]
     Dosage: 60 MG, EACH EVENING
     Route: 048
     Dates: start: 20090330, end: 20090407
  6. LAROXYL [Concomitant]
  7. IKOREL [Concomitant]
  8. STABLON [Concomitant]
     Dates: end: 20090330
  9. SINGULAIR [Concomitant]

REACTIONS (2)
  - DIZZINESS [None]
  - FALL [None]
